FAERS Safety Report 7373412-4 (Version None)
Quarter: 2011Q1

REPORT INFORMATION
  Report Type: 
  Country: None (occurrence: None)
  Receive Date: 20110325
  Receipt Date: 20110314
  Transmission Date: 20110831
  Serious: Yes (Life-Threatening, Other)
  Sender: FDA-Public Use
  Company Number: NL-AMGEN-US274046

PATIENT
  Age: 66 Year
  Sex: Male

DRUGS (4)
  1. MELOXICAM [Concomitant]
     Dosage: UNK UNK, UNK
  2. ENBREL [Suspect]
     Indication: RHEUMATOID ARTHRITIS
     Dosage: 50 MG, QWK
     Dates: start: 20040501, end: 20080330
  3. METFORMIN HCL [Concomitant]
     Dosage: UNK UNK, BID
  4. ESOMEPRAZOLE MAGNESIUM [Concomitant]
     Dosage: UNK UNK, UNK

REACTIONS (3)
  - DRY EYE [None]
  - COLON CANCER [None]
  - DRY MOUTH [None]
